FAERS Safety Report 4290566-7 (Version None)
Quarter: 2004Q1

REPORT INFORMATION
  Report Type: 
  Country: None (occurrence: None)
  Receive Date: 20040211
  Receipt Date: 20040202
  Transmission Date: 20041129
  Serious: Yes (Hospitalization)
  Sender: FDA-Public Use
  Company Number: 200410254DE

PATIENT
  Age: 75 Year
  Sex: Female
  Weight: 50 kg

DRUGS (9)
  1. DOCETAXEL [Suspect]
     Indication: OVARIAN CANCER
     Route: 042
     Dates: start: 20031001, end: 20040120
  2. CIPRAMIL [Concomitant]
     Indication: DEPRESSION
     Route: 048
  3. ALDACTONE [Concomitant]
     Indication: HYPOKALAEMIA
     Route: 048
  4. JODID [Concomitant]
     Route: 048
  5. PANTOZOL [Concomitant]
     Indication: PROPHYLAXIS
     Route: 048
  6. SODIUM [Concomitant]
     Indication: HYPONATRAEMIA
     Dosage: DOSE: 1-1-1
     Route: 048
  7. MORONAL [Concomitant]
     Indication: CANDIDIASIS
  8. ATOSIL [Concomitant]
     Indication: AGITATION
     Route: 048
  9. BIFITERAL [Concomitant]
     Indication: CONSTIPATION
     Route: 048

REACTIONS (4)
  - FEBRILE NEUTROPENIA [None]
  - HYPOKALAEMIA [None]
  - SUBILEUS [None]
  - VOMITING [None]
